FAERS Safety Report 19224473 (Version 1)
Quarter: 2021Q2

REPORT INFORMATION
  Report Type: Spontaneous
  Country: US (occurrence: US)
  Receive Date: 20210505
  Receipt Date: 20210505
  Transmission Date: 20210717
  Serious: No
  Sender: FDA-Public Use
  Company Number: US-ROCHE-2619676

PATIENT
  Sex: Male

DRUGS (10)
  1. MAGNESIUM [Concomitant]
     Active Substance: MAGNESIUM
     Route: 048
  2. VITAMIN B COMPLEX [Concomitant]
     Active Substance: CYANOCOBALAMIN\DEXPANTHENOL\NIACINAMIDE\PYRIDOXINE HYDROCHLORIDE\RIBOFLAVIN 5^-PHOSPHATE SODIUM\THIAMINE HYDROCHLORIDE\VITAMIN B COMPLEX
     Route: 048
  3. KRILL OIL OMEGA 3 [Concomitant]
     Route: 048
  4. TRAZODONE HYDROCHLORIDE. [Concomitant]
     Active Substance: TRAZODONE HYDROCHLORIDE
     Route: 048
  5. ABILIFY [Concomitant]
     Active Substance: ARIPIPRAZOLE
     Route: 048
  6. AMPHETAMINE [Concomitant]
     Active Substance: AMPHETAMINE
     Route: 048
  7. ESBRIET [Suspect]
     Active Substance: PIRFENIDONE
     Indication: IDIOPATHIC PULMONARY FIBROSIS
     Dosage: 1 TAB THREE TIMES A DAY
     Route: 048
  8. WELLBUTRIN [Concomitant]
     Active Substance: BUPROPION HYDROCHLORIDE
     Route: 048
  9. FISH OIL [Concomitant]
     Active Substance: FISH OIL
     Route: 048
  10. ATORVASTATIN [Concomitant]
     Active Substance: ATORVASTATIN
     Route: 048

REACTIONS (2)
  - Drug ineffective [Unknown]
  - Dyspnoea [Unknown]
